FAERS Safety Report 17555435 (Version 1)
Quarter: 2020Q1

REPORT INFORMATION
  Report Type: Report from Study
  Country: KR (occurrence: KR)
  Receive Date: 20200318
  Receipt Date: 20200318
  Transmission Date: 20200409
  Serious: Yes (Hospitalization, Other)
  Sender: FDA-Public Use
  Company Number: KR-AMGEN-KORNI2020045252

PATIENT
  Age: 57 Year
  Sex: Female

DRUGS (14)
  1. PEGFILGRASTIM [Suspect]
     Active Substance: PEGFILGRASTIM
     Indication: BREAST CANCER
     Dosage: 6 MILLIGRAM
     Route: 058
     Dates: start: 20200110, end: 20200110
  2. KRN125 [Suspect]
     Active Substance: FILGRASTIM
     Dosage: 6 MG
     Route: 058
     Dates: start: 20200221, end: 20200221
  3. DOXORUBICIN [Concomitant]
     Active Substance: DOXORUBICIN
     Indication: BREAST CANCER
     Dosage: 105 MILLIGRAM
     Dates: start: 20191212, end: 20191212
  4. PEGFILGRASTIM [Suspect]
     Active Substance: PEGFILGRASTIM
     Dosage: 6 MILLIGRAM
     Route: 058
     Dates: start: 20200131, end: 20200131
  5. PEGFILGRASTIM [Suspect]
     Active Substance: PEGFILGRASTIM
     Dosage: 6 MILLIGRAM
     Route: 058
     Dates: start: 20200221, end: 20200221
  6. KRN125 [Suspect]
     Active Substance: FILGRASTIM
     Indication: BREAST CANCER
     Dosage: 6 MG
     Route: 058
     Dates: start: 20200110, end: 20200110
  7. CYCLOPHOSPHAMIDE. [Concomitant]
     Active Substance: CYCLOPHOSPHAMIDE
     Dosage: 830 MILLIGRAM
     Dates: start: 20200220, end: 20200220
  8. CYCLOPHOSPHAMIDE. [Concomitant]
     Active Substance: CYCLOPHOSPHAMIDE
     Dosage: 830 MILLIGRAM
     Dates: start: 20200130, end: 20200130
  9. DOXORUBICIN [Concomitant]
     Active Substance: DOXORUBICIN
     Dosage: 83 MILLIGRAM
     Dates: start: 20200220, end: 20200220
  10. KRN125 [Suspect]
     Active Substance: FILGRASTIM
     Dosage: 6 MG
     Route: 058
     Dates: start: 20200131, end: 20200131
  11. CYCLOPHOSPHAMIDE. [Concomitant]
     Active Substance: CYCLOPHOSPHAMIDE
     Indication: BREAST CANCER
     Dosage: 1050 MILLIGRAM
     Dates: start: 20191212, end: 20191212
  12. DOXORUBICIN [Concomitant]
     Active Substance: DOXORUBICIN
     Dosage: 83 MILLIGRAM
     Dates: start: 20200109, end: 20200109
  13. CYCLOPHOSPHAMIDE. [Concomitant]
     Active Substance: CYCLOPHOSPHAMIDE
     Dosage: 830 MILLIGRAM
     Dates: start: 20200109, end: 20200109
  14. DOXORUBICIN [Concomitant]
     Active Substance: DOXORUBICIN
     Dosage: 83 MILLIGRAM
     Dates: start: 20200130, end: 20200130

REACTIONS (1)
  - Pancytopenia [Recovered/Resolved]

NARRATIVE: CASE EVENT DATE: 20200228
